FAERS Safety Report 18533917 (Version 1)
Quarter: 2020Q4

REPORT INFORMATION
  Report Type: Spontaneous
  Country: US (occurrence: US)
  Receive Date: 20201123
  Receipt Date: 20201123
  Transmission Date: 20210114
  Serious: No
  Sender: FDA-Public Use
  Company Number: US-BRACCO-2019US05255

PATIENT
  Sex: Male

DRUGS (3)
  1. LUMASON [Suspect]
     Active Substance: SULFUR HEXAFLUORIDE
     Indication: DIAGNOSTIC PROCEDURE
     Dosage: 2 ML, SINGLE
     Route: 042
     Dates: start: 2019, end: 2019
  2. DEFINITY [Suspect]
     Active Substance: PERFLUTREN
     Indication: DIAGNOSTIC PROCEDURE
     Dosage: UNK
     Dates: start: 2019, end: 2019
  3. LUMASON [Suspect]
     Active Substance: SULFUR HEXAFLUORIDE
     Indication: DIAGNOSTIC PROCEDURE
     Dosage: 2 ML, SINGLE
     Route: 042
     Dates: start: 2019, end: 2019

REACTIONS (2)
  - No adverse event [Unknown]
  - Drug ineffective [Unknown]

NARRATIVE: CASE EVENT DATE: 2019
